FAERS Safety Report 19927371 (Version 4)
Quarter: 2024Q1

REPORT INFORMATION
  Report Type: Report from Study
  Country: CD (occurrence: CD)
  Receive Date: 20211006
  Receipt Date: 20240214
  Transmission Date: 20240410
  Serious: Yes (Death, Life-Threatening, Hospitalization)
  Sender: FDA-Public Use
  Company Number: CD-SA-SAC20211004001528

PATIENT
  Age: 19 Year
  Sex: Male
  Weight: 53.5 kg

DRUGS (3)
  1. FEXINIDAZOLE [Suspect]
     Active Substance: FEXINIDAZOLE
     Indication: Trypanosomiasis
     Dosage: UNK (3/4DAYS THEN)
     Route: 048
     Dates: start: 20200902, end: 20200904
  2. LEMON JUICE [Suspect]
     Active Substance: LEMON JUICE
     Dosage: UNK
     Route: 048
     Dates: start: 20200904, end: 20200904
  3. POLYGEL [ALUMINIUM HYDROXIDE;MAGNESIUM HYDROXIDE;SIMALDRATE;SIMETICONE [Concomitant]
     Indication: Gastritis
     Dosage: UNK UNK, QD (1 TABLESPOON PER DAY/ 7 DAYS)
     Route: 048
     Dates: start: 20200902, end: 20200904

REACTIONS (6)
  - Flatulence [Fatal]
  - Gastrointestinal disorder [Fatal]
  - Agitation [Fatal]
  - Hyperhidrosis [Fatal]
  - Abdominal pain upper [Fatal]
  - Condition aggravated [Fatal]

NARRATIVE: CASE EVENT DATE: 20200904
